FAERS Safety Report 5114780-3 (Version None)
Quarter: 2006Q3

REPORT INFORMATION
  Report Type: 
  Country: None (occurrence: None)
  Receive Date: 20060922
  Receipt Date: 20060922
  Transmission Date: 20061208
  Serious: Yes (Hospitalization)
  Sender: FDA-Public Use
  Company Number: None

PATIENT
  Age: 45 Year
  Sex: Male
  Weight: 107.5025 kg

DRUGS (10)
  1. REMODULIN [Suspect]
     Indication: PULMONARY HYPERTENSION
     Dosage: 18NG/KG/MIN IV; 33CC/24HR
     Route: 042
     Dates: start: 20050101
  2. LASIX [Concomitant]
  3. POTASSIUM [Concomitant]
  4. ZAROXOLYN [Concomitant]
  5. CORDARONE [Concomitant]
  6. PREVACID [Concomitant]
  7. MAG OXIDE [Concomitant]
  8. COLACE [Concomitant]
  9. SPIRONOLACTONE [Concomitant]
  10. WARFARIN SODIUM [Concomitant]

REACTIONS (10)
  - CATHETER RELATED INFECTION [None]
  - CENTRAL LINE INFECTION [None]
  - CORYNEBACTERIUM INFECTION [None]
  - DRUG INEFFECTIVE [None]
  - DRUG TOXICITY [None]
  - HYPOMAGNESAEMIA [None]
  - MUSCLE SWELLING [None]
  - MYALGIA [None]
  - RENAL TUBULAR NECROSIS [None]
  - STREPTOCOCCAL INFECTION [None]
